FAERS Safety Report 5208631-6 (Version None)
Quarter: 2007Q1

REPORT INFORMATION
  Report Type: 
  Country: None (occurrence: None)
  Receive Date: 20070116
  Receipt Date: 20070109
  Transmission Date: 20070707
  Serious: Yes (Life-Threatening)
  Sender: FDA-Public Use
  Company Number: PHBS2006CN08116

PATIENT
  Age: 46 Year
  Sex: Female

DRUGS (3)
  1. SPIRONOLACTONE [Concomitant]
  2. FUROSEMIDE [Suspect]
  3. SANDOSTATIN [Suspect]
     Indication: HEPATIC CIRRHOSIS
     Dosage: 0.1 MG, Q4H
     Route: 058
     Dates: start: 20060518, end: 20060523

REACTIONS (5)
  - HAEMATEMESIS [None]
  - MELAENA [None]
  - OESOPHAGEAL VARICES HAEMORRHAGE [None]
  - PORTAL VEIN PRESSURE INCREASED [None]
  - UPPER GASTROINTESTINAL HAEMORRHAGE [None]
